FAERS Safety Report 7271677-0 (Version None)
Quarter: 2011Q1

REPORT INFORMATION
  Report Type: 
  Country: None (occurrence: None)
  Receive Date: 20110203
  Receipt Date: 20110131
  Transmission Date: 20110831
  Serious: Yes (Other)
  Sender: FDA-Public Use
  Company Number: US-JNJFOC-20101107172

PATIENT
  Sex: Female
  Weight: 62.6 kg

DRUGS (9)
  1. FENTANYL-100 [Suspect]
     Indication: FIBROMYALGIA
     Route: 062
  2. FENTANYL-100 [Suspect]
     Route: 062
  3. DEXEDRINE [Suspect]
     Indication: ILL-DEFINED DISORDER
     Route: 065
  4. ULTRAM [Suspect]
     Indication: ILL-DEFINED DISORDER
     Route: 065
  5. FENTANYL TRANSDERMAL SYSTEM [Suspect]
     Route: 062
  6. FENTANYL TRANSDERMAL SYSTEM [Suspect]
     Route: 062
  7. FENTANYL-100 [Suspect]
     Route: 062
  8. FENTANYL TRANSDERMAL SYSTEM [Suspect]
     Indication: FIBROMYALGIA
     Route: 062
  9. FENTANYL-100 [Suspect]
     Route: 062

REACTIONS (9)
  - FATIGUE [None]
  - INTERVERTEBRAL DISC DEGENERATION [None]
  - DRUG ADMINISTERED AT INAPPROPRIATE SITE [None]
  - HYPERTENSION [None]
  - EXOSTOSIS [None]
  - PRODUCT ADHESION ISSUE [None]
  - DRUG INEFFECTIVE [None]
  - SPINAL COLUMN STENOSIS [None]
  - WRONG TECHNIQUE IN DRUG USAGE PROCESS [None]
